FAERS Safety Report 4652175-7 (Version None)
Quarter: 2005Q2

REPORT INFORMATION
  Report Type: 
  Country: None (occurrence: None)
  Receive Date: 20050504
  Receipt Date: 20050427
  Transmission Date: 20051028
  Serious: Yes (Other)
  Sender: FDA-Public Use
  Company Number: US-BRISTOL-MYERS SQUIBB COMPANY-12948287

PATIENT
  Age: 50 Year
  Sex: Male
  Weight: 58 kg

DRUGS (4)
  1. CETUXIMAB [Suspect]
     Indication: HEPATIC NEOPLASM MALIGNANT
     Dosage: LD OF 400 MG/M2 ON 24-MAR-05/250 MG/M2 ON 31-MAR, 07-APR AND 14-APR-05/C1W5 TX ON 25-APR-05 HELD.
     Route: 042
     Dates: start: 20050414, end: 20050414
  2. M.V.I. [Concomitant]
  3. SARNA [Concomitant]
  4. CLEOCIN [Concomitant]

REACTIONS (1)
  - ASPARTATE AMINOTRANSFERASE INCREASED [None]
